FAERS Safety Report 5149495-9 (Version None)
Quarter: 2006Q4

REPORT INFORMATION
  Report Type: 
  Country: None (occurrence: None)
  Receive Date: 20061113
  Receipt Date: 20060125
  Transmission Date: 20070319
  Serious: Yes (Other)
  Sender: FDA-Public Use
  Company Number: US-ROCHE-433886

PATIENT
  Age: 19 Year
  Sex: Male
  Weight: 74.8 kg

DRUGS (5)
  1. ACCUTANE [Suspect]
     Indication: ACNE
     Route: 048
     Dates: start: 19910615, end: 19920615
  2. ACCUTANE [Suspect]
     Route: 048
     Dates: start: 19940311, end: 19940324
  3. ACCUTANE [Suspect]
     Dosage: DOSE INCREASED TO 40 MG TWICE A DAY ON: MONDAYS, WEDNESDAYS AND FRIDAYS.
     Route: 048
     Dates: start: 19940325, end: 19940502
  4. ACCUTANE [Suspect]
     Dosage: DOSE INCREASED TO 40 MG DAILY ON WEDNESDAYS AND SUNDAYS AND 40 MG TWICE A DAY ON ALL OTHER DAYS.
     Route: 048
     Dates: start: 19940503, end: 19940630
  5. ACCUTANE [Suspect]
     Route: 048
     Dates: start: 19940701, end: 19940809

REACTIONS (5)
  - HEPATIC ENZYME INCREASED [None]
  - LIP DRY [None]
  - MASS [None]
  - NIGHT BLINDNESS [None]
  - WEGENER'S GRANULOMATOSIS [None]
